FAERS Safety Report 9124657 (Version 1)
Quarter: 2013Q1

REPORT INFORMATION
  Report Type: Spontaneous
  Country: US (occurrence: US)
  Receive Date: 20130227
  Receipt Date: 20130227
  Transmission Date: 20140127
  Serious: No
  Sender: FDA-Public Use
  Company Number: US-MYLANLABS-2012S1006922

PATIENT
  Sex: Female

DRUGS (2)
  1. IPRATROPIUM BROMIDE [Suspect]
     Indication: DYSPNOEA
     Route: 055
     Dates: start: 201201
  2. IPRATROPIUM BROMIDE [Suspect]
     Indication: DYSPNOEA
     Route: 055
     Dates: start: 201201

REACTIONS (4)
  - Oral pain [Not Recovered/Not Resolved]
  - Gingival swelling [Not Recovered/Not Resolved]
  - Gingival erythema [Not Recovered/Not Resolved]
  - Dry mouth [Not Recovered/Not Resolved]
